FAERS Safety Report 22960672 (Version 3)
Quarter: 2023Q4

REPORT INFORMATION
  Report Type: Report from Study
  Country: TR (occurrence: None)
  Receive Date: 20230920
  Receipt Date: 20231002
  Transmission Date: 20240110
  Serious: Yes (Hospitalization)
  Sender: FDA-Public Use
  Company Number: TR-Eisai Medical Research-EC-2023-148728

PATIENT
  Age: 64 Year
  Sex: Male
  Weight: 71 kg

DRUGS (16)
  1. LENVATINIB [Suspect]
     Active Substance: LENVATINIB
     Indication: Hormone-refractory prostate cancer
     Dosage: STARTED AT 20 MG, FLUCTUATED DOSAGE
     Route: 048
     Dates: start: 20230530, end: 20230816
  2. LENVATINIB [Suspect]
     Active Substance: LENVATINIB
     Route: 048
     Dates: start: 20230817
  3. PEMBROLIZUMAB [Suspect]
     Active Substance: PEMBROLIZUMAB
     Indication: Hormone-refractory prostate cancer
     Route: 042
     Dates: start: 20230530, end: 20230816
  4. PEMBROLIZUMAB [Suspect]
     Active Substance: PEMBROLIZUMAB
     Route: 042
     Dates: start: 20230906
  5. CALCIUM CARBONATE [Concomitant]
     Active Substance: CALCIUM CARBONATE
     Dates: start: 20220414
  6. MORFIA [Concomitant]
     Dates: start: 20220615
  7. CHOLECALCIFEROL [Concomitant]
     Active Substance: CHOLECALCIFEROL
     Dates: start: 20220414
  8. CATAFLAM [Concomitant]
     Active Substance: DICLOFENAC POTASSIUM
     Dates: start: 20220615
  9. ABOUND [ARGININE;BETA-HYDROXY-BETA-METHYLBUTYRATE;LEVOGLUTAMIDE] [Concomitant]
     Dates: start: 20220615
  10. LEUPROLIDE ACETATE [Concomitant]
     Active Substance: LEUPROLIDE ACETATE
     Dates: start: 20220530
  11. EXFORGE [Concomitant]
     Active Substance: AMLODIPINE BESYLATE\VALSARTAN
     Dates: start: 20221015
  12. INFEX [CEFPODOXIME PROXETIL] [Concomitant]
     Dates: start: 20221116
  13. NITROFURANTOIN [Concomitant]
     Active Substance: NITROFURANTOIN
     Dates: start: 20221116
  14. ASPIRIN [Concomitant]
     Active Substance: ASPIRIN
     Dates: start: 20220831
  15. PROPIVERINE HYDROCHLORIDE [Concomitant]
     Active Substance: PROPIVERINE HYDROCHLORIDE
     Dates: start: 20221114
  16. LEVOTHYROXINE SODIUM [Concomitant]
     Active Substance: LEVOTHYROXINE SODIUM
     Dates: start: 20230118

REACTIONS (1)
  - Urinary tract infection [Recovering/Resolving]

NARRATIVE: CASE EVENT DATE: 20230816
